FAERS Safety Report 18105208 (Version 1)
Quarter: 2020Q3

REPORT INFORMATION
  Report Type: Spontaneous
  Country: AU (occurrence: AU)
  Receive Date: 20200804
  Receipt Date: 20200804
  Transmission Date: 20201103
  Serious: Yes (Hospitalization, Other)
  Sender: FDA-Public Use
  Company Number: AU-SUN PHARMACEUTICAL INDUSTRIES LTD-2020RR-255492

PATIENT
  Age: 57 Year
  Sex: Female

DRUGS (3)
  1. PEMETREXED. [Suspect]
     Active Substance: PEMETREXED
     Dosage: SEVEN CYCLES
     Route: 065
  2. CARBOPLATIN. [Suspect]
     Active Substance: CARBOPLATIN
     Indication: LUNG ADENOCARCINOMA STAGE IV
     Dosage: FOUR CYCLES
     Route: 065
  3. PEMETREXED. [Suspect]
     Active Substance: PEMETREXED
     Indication: LUNG ADENOCARCINOMA STAGE IV
     Dosage: FOUR CYCLES, WITH CARBOPLATIN
     Route: 065

REACTIONS (2)
  - Disease progression [Unknown]
  - Disseminated intravascular coagulation [Unknown]
